FAERS Safety Report 16133385 (Version 1)
Quarter: 2019Q1

REPORT INFORMATION
  Report Type: Spontaneous
  Country: FR (occurrence: FR)
  Receive Date: 20190329
  Receipt Date: 20190329
  Transmission Date: 20190418
  Serious: Yes (Other)
  Sender: FDA-Public Use
  Company Number: FR-TEVA-2019-FR-1029428

PATIENT
  Age: 86 Year
  Sex: Male

DRUGS (10)
  1. PREDNISOLONE TEVA 20 MG, COMPRIM? EFFERVESCENT S?CABLE [Suspect]
     Active Substance: PREDNISOLONE
     Indication: LYMPHANGIOSIS CARCINOMATOSA
     Dosage: 100 MILLIGRAM DAILY;
     Route: 048
     Dates: start: 20181220
  2. RAMIPRIL RATIOPHARM [Suspect]
     Active Substance: RAMIPRIL
     Indication: HYPERTENSION
     Dosage: 5 MILLIGRAM DAILY; 1-0-0
     Route: 048
     Dates: start: 2018
  3. KARDEGIC [Suspect]
     Active Substance: ASPIRIN DL-LYSINE
     Indication: THROMBOSIS PROPHYLAXIS
     Dosage: 75 MILLIGRAM DAILY; 1-0-0
     Route: 048
     Dates: start: 2018
  4. DUROGESIC [Suspect]
     Active Substance: FENTANYL
     Indication: PAIN
     Dates: start: 20181112
  5. BISOCE [Suspect]
     Active Substance: BISOPROLOL
     Indication: HYPERTENSION
     Dosage: 1.25 MILLIGRAM DAILY; 1-0-0
     Route: 048
     Dates: start: 20181209
  6. PREDNISOLONE MYLAN [Suspect]
     Active Substance: PREDNISOLONE
     Indication: LYMPHANGIOSIS CARCINOMATOSA
     Route: 042
     Dates: start: 20181218, end: 20181218
  7. ATORVASTATINE TEVA SANTE [Suspect]
     Active Substance: ATORVASTATIN
     Indication: HYPERCHOLESTEROLAEMIA
     Dosage: 10 MILLIGRAM DAILY; 1-0-0
     Route: 048
     Dates: start: 2018
  8. SOLUPRED (PREDNISOLONE SODIUM SULFOBENZOATE) [Suspect]
     Active Substance: PREDNISOLONE SODIUM METAZOATE
     Indication: LYMPHANGIOSIS CARCINOMATOSA
     Dosage: FROM 06/12/18 TO 13/12/18: 2 / DAY; FROM 14/12/18 TO 17/12/18: 1 / D; ON 19/12/18: 5 / DAY
     Route: 048
     Dates: start: 20181206
  9. ALPRAZOLAM MERCK 0,25 MG, COMPRIM? S?CABLE [Suspect]
     Active Substance: ALPRAZOLAM
     Indication: ANXIETY
     Dosage: 1/2 TO 2 IN THE EVENING
     Route: 048
     Dates: start: 20181216
  10. LANSOPRAZOLE MYLAN [Suspect]
     Active Substance: LANSOPRAZOLE
     Indication: GASTROOESOPHAGEAL REFLUX DISEASE
     Dosage: 15 MILLIGRAM DAILY; 0-0-1
     Route: 048
     Dates: start: 20181015

REACTIONS (1)
  - Cholestasis [Recovering/Resolving]

NARRATIVE: CASE EVENT DATE: 20181128
